FAERS Safety Report 14796626 (Version 2)
Quarter: 2018Q3

REPORT INFORMATION
  Report Type: Report from Study
  Country: US (occurrence: US)
  Receive Date: 20180423
  Receipt Date: 20180723
  Transmission Date: 20181010
  Serious: No
  Sender: FDA-Public Use
  Company Number: US-AMGEN-USASP2018035175

PATIENT
  Age: 70 Year
  Sex: Female

DRUGS (2)
  1. REPATHA [Suspect]
     Active Substance: EVOLOCUMAB
     Indication: BLOOD CHOLESTEROL ABNORMAL
     Dosage: 140 MG, UNK
     Route: 065
     Dates: start: 201802
  2. REPATHA [Suspect]
     Active Substance: EVOLOCUMAB
     Indication: HYPERLIPIDAEMIA
     Dosage: 420 MG, QMO
     Route: 065
     Dates: start: 20180309

REACTIONS (5)
  - Injection site pain [Unknown]
  - Back pain [Recovered/Resolved]
  - Joint stiffness [Recovered/Resolved]
  - Arthralgia [Unknown]
  - Influenza like illness [Recovered/Resolved]

NARRATIVE: CASE EVENT DATE: 201802
